FAERS Safety Report 5108623-1 (Version None)
Quarter: 2006Q3

REPORT INFORMATION
  Report Type: 
  Country: None (occurrence: None)
  Receive Date: 20060915
  Receipt Date: 20060831
  Transmission Date: 20061208
  Serious: Yes (Other)
  Sender: FDA-Public Use
  Company Number: GB-2006-007039

PATIENT
  Age: 40 Year
  Sex: Female
  Weight: 57.1 kg

DRUGS (5)
  1. BETAFERON (INTERFERON BETA - 1B) INJECTION, 250UG [Suspect]
     Dosage: 8 MIU, SUBCUTANEOUS
     Route: 058
     Dates: start: 20050815
  2. DETRUSITOL XL (TOLTERODINE L-TARTRATE) [Concomitant]
  3. CITALOPRAM HYDROBROMIDE [Concomitant]
  4. MOVICOL (MACROGOL, SODIUM BICARBONATE) [Concomitant]
  5. VITAMINS [Concomitant]

REACTIONS (2)
  - ARTHRITIS [None]
  - WEIGHT INCREASED [None]
